FAERS Safety Report 15710708 (Version 1)
Quarter: 2018Q4

REPORT INFORMATION
  Report Type: Spontaneous
  Country: IT (occurrence: IT)
  Receive Date: 20181211
  Receipt Date: 20181211
  Transmission Date: 20190205
  Serious: Yes (Other)
  Sender: FDA-Public Use
  Company Number: IT-SANIK-2018SA329243AA

PATIENT
  Age: 76 Year
  Sex: Male

DRUGS (12)
  1. PLAVIX [Suspect]
     Active Substance: CLOPIDOGREL BISULFATE
     Indication: ACUTE MYOCARDIAL INFARCTION
     Dosage: 1 DF, QD
     Route: 048
     Dates: start: 20180501, end: 20181001
  2. MEDROL [METHYLPREDNISOLONE] [Concomitant]
  3. ZYLORIC [Concomitant]
     Active Substance: ALLOPURINOL
  4. COLCHICINE. [Concomitant]
     Active Substance: COLCHICINE
  5. TORVAST [Concomitant]
     Active Substance: ATORVASTATIN
  6. EUTIROX [Concomitant]
     Active Substance: LEVOTHYROXINE SODIUM
  7. PRADAXA [Suspect]
     Active Substance: DABIGATRAN ETEXILATE MESYLATE
     Indication: ACUTE MYOCARDIAL INFARCTION
     Dosage: 2 DF, QD
     Route: 048
     Dates: start: 20180501, end: 20181001
  8. AMIODARONE [Concomitant]
     Active Substance: AMIODARONE
  9. SPIRIVA [Concomitant]
     Active Substance: TIOTROPIUM BROMIDE MONOHYDRATE
     Dosage: UNK
  10. PANTORC [Concomitant]
     Active Substance: PANTOPRAZOLE SODIUM
  11. TRIATEC HCT [Concomitant]
     Active Substance: HYDROCHLOROTHIAZIDE\RAMIPRIL
     Dosage: UNK
  12. ONBREZ BREEZHALER [Concomitant]
     Active Substance: INDACATEROL

REACTIONS (1)
  - Pericardial effusion [Recovering/Resolving]

NARRATIVE: CASE EVENT DATE: 20181001
